FAERS Safety Report 15318356 (Version 4)
Quarter: 2018Q4

REPORT INFORMATION
  Report Type: Report from Study
  Country: None (occurrence: DE)
  Receive Date: 20180825
  Receipt Date: 20181101
  Transmission Date: 20190204
  Serious: Yes (Hospitalization)
  Sender: FDA-Public Use
  Company Number: DE-ABBVIE-18S-062-2458711-00

PATIENT
  Sex: Male

DRUGS (6)
  1. OLANZAPIN [Concomitant]
     Active Substance: OLANZAPINE
     Indication: PRODUCT USED FOR UNKNOWN INDICATION
     Dosage: NOCTE 2.5 UNKNOWN
     Route: 065
  2. CLOZAPIN [Concomitant]
     Active Substance: CLOZAPINE
     Indication: PRODUCT USED FOR UNKNOWN INDICATION
  3. DUODOPA [Suspect]
     Active Substance: CARBIDOPA\LEVODOPA
     Dosage: MD 5.5 ML CRD 4.5 ML/H CRN 3.5 ML/H ED 2.5 ML
     Route: 050
     Dates: start: 201810
  4. HUMALOG [Concomitant]
     Active Substance: INSULIN LISPRO
     Indication: PRODUCT USED FOR UNKNOWN INDICATION
     Dosage: MIX25/MIX50
     Route: 065
  5. DUODOPA [Suspect]
     Active Substance: CARBIDOPA\LEVODOPA
     Dosage: MD 2.5 ML; CRD 4 ML/ H; CRN 3.5 ML/ H; ED 2.5 ML
     Route: 050
     Dates: start: 2018, end: 201810
  6. DUODOPA [Suspect]
     Active Substance: CARBIDOPA\LEVODOPA
     Indication: PARKINSON^S DISEASE
     Dosage: MD 5 ML; CRD 7.5 ML/ H; CRN 4.8 ML/ H; ED 0.5 ML
     Route: 050
     Dates: start: 20170314

REACTIONS (4)
  - Extremity contracture [Not Recovered/Not Resolved]
  - Hospitalisation [Unknown]
  - Pneumonia [Unknown]
  - Akinesia [Not Recovered/Not Resolved]

NARRATIVE: CASE EVENT DATE: 2018
